FAERS Safety Report 4817764-5 (Version None)
Quarter: 2005Q4

REPORT INFORMATION
  Report Type: 
  Country: None (occurrence: None)
  Receive Date: 20051102
  Receipt Date: 20041117
  Transmission Date: 20060501
  Serious: Yes (Hospitalization)
  Sender: FDA-Public Use
  Company Number: DE-BOEHRINGER INGELHEIM PHARMACEUTICALS, INC.-2004-DE-05890DE

PATIENT
  Sex: Male
  Weight: 80 kg

DRUGS (10)
  1. TIPRANAVIR + RITONAVIR CO-ADMIN [Suspect]
     Indication: HIV INFECTION
     Route: 048
     Dates: start: 20040405
  2. LOPERAMID [Concomitant]
     Indication: DIARRHOEA
     Route: 048
     Dates: start: 20030402
  3. FALSO UNO [Concomitant]
     Indication: BENIGN PROSTATIC HYPERPLASIA
     Route: 048
  4. CODIPRONT [Concomitant]
     Indication: COUGH
     Route: 048
     Dates: start: 20040712
  5. TUSSARET COMBI [Concomitant]
     Indication: COUGH
     Dosage: PRN
     Route: 048
     Dates: start: 20040712
  6. TAVOR [Concomitant]
     Indication: INSOMNIA
     Route: 048
     Dates: start: 20040423
  7. DAPSON [Concomitant]
     Indication: PROPHYLAXIS
     Route: 048
     Dates: start: 19980501
  8. LORZAAR [Concomitant]
     Indication: HYPERTENSION
     Route: 048
     Dates: start: 20020114
  9. DIFLUCAN [Concomitant]
     Indication: PROPHYLAXIS
     Route: 048
     Dates: start: 19980501
  10. FENISTIL [Concomitant]
     Indication: PRURITUS
     Route: 048
     Dates: start: 19991026

REACTIONS (1)
  - SNORING [None]
